FAERS Safety Report 5474517-5 (Version None)
Quarter: 2007Q4

REPORT INFORMATION
  Report Type: 
  Country: None (occurrence: None)
  Receive Date: 20071002
  Receipt Date: 20070924
  Transmission Date: 20080405
  Serious: Yes (Other)
  Sender: FDA-Public Use
  Company Number: US-ROXANE LABORATORIES, INC-2007-BP-21561RO

PATIENT
  Age: 8 Year
  Sex: Male

DRUGS (15)
  1. METHOTREXATE [Suspect]
     Indication: BURKITT'S LYMPHOMA STAGE III
     Route: 042
  2. METHOTREXATE [Suspect]
     Route: 037
  3. CYCLOPHOSPHAMIDE [Suspect]
     Indication: BURKITT'S LYMPHOMA STAGE III
  4. PREDNISONE [Suspect]
     Indication: BURKITT'S LYMPHOMA STAGE III
  5. LEUCOVORIN CALCIUM [Suspect]
     Indication: CHEMOTHERAPEUTIC DRUG LEVEL ABOVE THERAPEUTIC
  6. VINCRISTINE [Suspect]
     Indication: BURKITT'S LYMPHOMA STAGE III
  7. DOXORUBICIN HCL [Suspect]
     Indication: BURKITT'S LYMPHOMA STAGE III
  8. HYDROCORTISONE [Suspect]
     Indication: BURKITT'S LYMPHOMA STAGE III
     Route: 037
  9. CT CONTRAST DYE [Suspect]
     Indication: COMPUTERISED TOMOGRAM
     Route: 042
  10. CEFTAZIDIME [Concomitant]
     Indication: INFECTION
  11. MEROPENEM [Concomitant]
     Indication: INFECTION
  12. AMIKACIN [Concomitant]
     Indication: INFECTION
  13. VANCOMYCIN [Concomitant]
     Indication: INFECTION
  14. ACYCLOVIR [Concomitant]
     Indication: INFECTION
  15. AMPHOTERICIN B [Concomitant]
     Indication: INFECTION

REACTIONS (9)
  - BLOOD CREATININE INCREASED [None]
  - DRUG TOXICITY [None]
  - ENCEPHALITIS [None]
  - GRAND MAL CONVULSION [None]
  - HYPERTENSION [None]
  - MUCOSAL INFLAMMATION [None]
  - NEUTROPENIA [None]
  - PYREXIA [None]
  - VOMITING [None]
